FAERS Safety Report 23575574 (Version 3)
Quarter: 2024Q1

REPORT INFORMATION
  Report Type: Spontaneous
  Country: US (occurrence: US)
  Receive Date: 20240228
  Receipt Date: 20240325
  Transmission Date: 20240410
  Serious: Yes (Other)
  Sender: FDA-Public Use
  Company Number: US-PFIZER INC-202400047707

PATIENT
  Sex: Male

DRUGS (1)
  1. GENOTROPIN [Suspect]
     Active Substance: SOMATROPIN
     Dosage: USED THE FIRST LINE FOR HIS DOSAGE FOR ABOUT 7 DAYS TO 2 WEEKS

REACTIONS (1)
  - Incorrect dose administered [Unknown]
